FAERS Safety Report 4976136-3 (Version None)
Quarter: 2006Q2

REPORT INFORMATION
  Report Type: 
  Country: None (occurrence: None)
  Receive Date: 20060411
  Receipt Date: 20060410
  Transmission Date: 20061013
  Serious: Yes (Death)
  Sender: FDA-Public Use
  Company Number: 2005S1008786

PATIENT
  Age: 42 Year
  Sex: Male

DRUGS (10)
  1. CLOZAPINE [Suspect]
     Indication: SCHIZOAFFECTIVE DISORDER
     Dosage: 200 + 100 MG; QAM; PO - SEE IMAGE
     Route: 048
     Dates: start: 20030901, end: 20050822
  2. CLOZAPINE [Suspect]
     Indication: SCHIZOAFFECTIVE DISORDER
     Dosage: 200 + 100 MG; QAM; PO - SEE IMAGE
     Route: 048
     Dates: start: 20030901, end: 20050822
  3. CLOZAPINE [Suspect]
     Indication: SCHIZOAFFECTIVE DISORDER
     Dosage: 200 + 100 MG; QAM; PO - SEE IMAGE
     Route: 048
     Dates: start: 20050921
  4. ARIPIPRAZOLE [Concomitant]
  5. VALPROATE SEMIODIUM [Concomitant]
  6. LEVOTHYROXINE SODIUM [Concomitant]
  7. BENZTROPINE MESYLATE [Concomitant]
  8. OXCARBAZEPINE [Concomitant]
  9. CITALOPRAM HYDROBROMIDE [Concomitant]
  10. MOLINDONE [Concomitant]

REACTIONS (2)
  - GRANULOCYTOPENIA [None]
  - LEUKOPENIA [None]
